FAERS Safety Report 19504544 (Version 1)
Quarter: 2021Q3

REPORT INFORMATION
  Report Type: Spontaneous
  Country: BR (occurrence: BR)
  Receive Date: 20210708
  Receipt Date: 20210708
  Transmission Date: 20211014
  Serious: Yes (Hospitalization, Other)
  Sender: FDA-Public Use
  Company Number: BR-LEADINGPHARMA-BR-2021LEALIT00230

PATIENT
  Age: 64 Year
  Sex: Male

DRUGS (2)
  1. FUROSEMIDE. [Suspect]
     Active Substance: FUROSEMIDE
     Indication: PRODUCT USED FOR UNKNOWN INDICATION
     Route: 065
  2. THIAMINE. [Interacting]
     Active Substance: THIAMINE
     Indication: VITAMIN B1 DEFICIENCY
     Route: 042

REACTIONS (2)
  - Wernicke^s encephalopathy [Recovering/Resolving]
  - Vitamin B1 deficiency [Recovering/Resolving]
